FAERS Safety Report 25616752 (Version 1)
Quarter: 2025Q3

REPORT INFORMATION
  Report Type: Spontaneous
  Country: US (occurrence: US)
  Receive Date: 20250729
  Receipt Date: 20250729
  Transmission Date: 20251020
  Serious: No
  Sender: AMGEN
  Company Number: US-AMGEN-USASP2025146222

PATIENT
  Age: 76 Year
  Sex: Male

DRUGS (3)
  1. REPATHA [Suspect]
     Active Substance: EVOLOCUMAB
     Indication: Product used for unknown indication
     Route: 065
  2. NEXLETOL [Concomitant]
     Active Substance: BEMPEDOIC ACID
  3. PRALUENT [Concomitant]
     Active Substance: ALIROCUMAB

REACTIONS (1)
  - Drug intolerance [Unknown]
